FAERS Safety Report 14548400 (Version 1)
Quarter: 2018Q1

REPORT INFORMATION
  Report Type: Spontaneous
  Country: US (occurrence: US)
  Receive Date: 20180219
  Receipt Date: 20180219
  Transmission Date: 20180509
  Serious: No
  Sender: FDA-Public Use
  Company Number: US-IPSEN BIOPHARMACEUTICALS, INC.-2017-02195

PATIENT
  Age: 40 Year
  Sex: Male
  Weight: 81.6 kg

DRUGS (1)
  1. DYSPORT [Suspect]
     Active Substance: ABOBOTULINUMTOXINA
     Indication: SKIN WRINKLING
     Dosage: 70UNITS
     Route: 065
     Dates: start: 20170306, end: 20170306

REACTIONS (3)
  - Dizziness [Not Recovered/Not Resolved]
  - Migraine [Unknown]
  - Overdose [Unknown]

NARRATIVE: CASE EVENT DATE: 201703
